FAERS Safety Report 5401855-4 (Version None)
Quarter: 2007Q3

REPORT INFORMATION
  Report Type: 
  Country: None (occurrence: None)
  Receive Date: 20070731
  Receipt Date: 20070727
  Transmission Date: 20080115
  Serious: Yes (Life-Threatening, Other)
  Sender: FDA-Public Use
  Company Number: JP-BOEHRINGER INGELHEIM PHARMACEUTICALS, INC.-2007-BP-18088NB

PATIENT
  Age: 66 Year
  Sex: Female
  Weight: 44.6 kg

DRUGS (5)
  1. PRAMIPEXOLE DIHYDROCHLORIDE [Suspect]
     Indication: PARKINSON'S DISEASE
     Route: 048
     Dates: start: 20070512, end: 20070623
  2. CABERGOLINE [Concomitant]
  3. LIORESAL [Concomitant]
  4. DOPACOL [Concomitant]
  5. STOBRUN (TRIHEXYPHENIDYL HYDROCHLORIDE) [Concomitant]

REACTIONS (1)
  - AGRANULOCYTOSIS [None]
